FAERS Safety Report 4752733-5 (Version None)
Quarter: 2005Q3

REPORT INFORMATION
  Report Type: 
  Country: None (occurrence: None)
  Receive Date: 20050823
  Receipt Date: 20050802
  Transmission Date: 20060218
  Serious: Yes (Hospitalization)
  Sender: FDA-Public Use
  Company Number: US_0411107634

PATIENT
  Age: 31 Year
  Sex: Male
  Weight: 92 kg

DRUGS (16)
  1. ZYPREXA [Suspect]
     Indication: DEPRESSION
     Dosage: 5 MG AT BEDTIME
     Dates: start: 20040514, end: 20040722
  2. REGLAN [Concomitant]
  3. HYDROCODONE [Concomitant]
  4. VASOTEC [Concomitant]
  5. METOPROLOL [Concomitant]
  6. PHENERGAN (PROMETHAZINE HYDROCHLORIDE) [Concomitant]
  7. RISPERDAL [Concomitant]
  8. BENZTROPINE [Concomitant]
  9. PROTONIX [Concomitant]
  10. MIRTAZAPINE [Concomitant]
  11. CHLORPROMAZINE HCL [Concomitant]
  12. ASPIRIN [Concomitant]
  13. NORVASC [Concomitant]
  14. ZOFRAN [Concomitant]
  15. GLUCOTROL [Concomitant]
  16. PANCREASE (PANCRELIPASE) [Concomitant]

REACTIONS (12)
  - BLOOD AMYLASE INCREASED [None]
  - BLOOD CREATINE PHOSPHOKINASE INCREASED [None]
  - BLOOD GLUCOSE INCREASED [None]
  - CONDITION AGGRAVATED [None]
  - DIABETES MELLITUS [None]
  - DIABETIC GASTROPARESIS [None]
  - HAEMATOCRIT DECREASED [None]
  - HYPERTENSION [None]
  - LIPASE INCREASED [None]
  - MALLORY-WEISS SYNDROME [None]
  - TREATMENT NONCOMPLIANCE [None]
  - VOMITING PSYCHOGENIC [None]
